FAERS Safety Report 4364688-6 (Version None)
Quarter: 2004Q2

REPORT INFORMATION
  Report Type: 
  Country: None (occurrence: None)
  Receive Date: 20040521
  Receipt Date: 20040507
  Transmission Date: 20050107
  Serious: Yes (Disabling)
  Sender: FDA-Public Use
  Company Number: CIP04000555

PATIENT
  Age: 54 Year
  Sex: Female
  Weight: 45.4 kg

DRUGS (4)
  1. ACTONEL [Suspect]
     Indication: OSTEOPENIA
     Dosage: 35 MG ONCE WEEKLY, ORAL
     Route: 048
     Dates: start: 20030101
  2. ACTONEL [Suspect]
     Indication: OSTEOPENIA
     Dosage: 5 MG, DAILY, ORAL
     Route: 048
     Dates: start: 20010101, end: 20030101
  3. IMITREX ^CERENEX^ (SUMATRIPTAN SUCCINATE) [Concomitant]
  4. ATENOLOL [Concomitant]

REACTIONS (8)
  - ARTHRALGIA [None]
  - EPICONDYLITIS [None]
  - JOINT SWELLING [None]
  - MUSCULOSKELETAL STIFFNESS [None]
  - NECK PAIN [None]
  - PAIN IN EXTREMITY [None]
  - TENDONITIS [None]
  - TRIGGER FINGER [None]
